FAERS Safety Report 22123751 (Version 3)
Quarter: 2023Q2

REPORT INFORMATION
  Report Type: Report from Study
  Country: JP (occurrence: JP)
  Receive Date: 20230322
  Receipt Date: 20230425
  Transmission Date: 20230721
  Serious: Yes (Other)
  Sender: FDA-Public Use
  Company Number: JP-AMGEN-JPNSP2023047237

PATIENT
  Age: 83 Year
  Sex: Male

DRUGS (18)
  1. SOTORASIB [Suspect]
     Active Substance: SOTORASIB
     Indication: K-ras gene mutation
     Dosage: 960 MILLIGRAM, QD
     Route: 048
     Dates: start: 20220722, end: 202302
  2. SOTORASIB [Suspect]
     Active Substance: SOTORASIB
     Indication: Non-small cell lung cancer stage III
  3. JANUVIA [Concomitant]
     Active Substance: SITAGLIPTIN PHOSPHATE
     Dosage: UNK
  4. AMBROXOL [Concomitant]
     Active Substance: AMBROXOL
     Dosage: UNK
  5. CELECOXIB [Concomitant]
     Active Substance: CELECOXIB
     Dosage: UNK
  6. CALONAL [Concomitant]
     Active Substance: ACETAMINOPHEN
     Dosage: UNK
  7. METHYLCOBALAMIN [Concomitant]
     Active Substance: METHYLCOBALAMIN
     Dosage: UNK
  8. TRAMADOL [Concomitant]
     Active Substance: TRAMADOL
     Dosage: UNK
  9. NAUZELIN [Concomitant]
     Active Substance: DOMPERIDONE
     Dosage: UNK
  10. PYRIDOXAL [Concomitant]
     Active Substance: PYRIDOXAL
     Dosage: UNK
  11. CARBOCYSTEINE [Concomitant]
     Active Substance: CARBOCYSTEINE
     Dosage: UNK
  12. CALCIUM CARBONATE\CHOLECALCIFEROL\MAGNESIUM CARBONATE [Concomitant]
     Active Substance: CALCIUM CARBONATE\CHOLECALCIFEROL\MAGNESIUM CARBONATE
     Indication: Prophylaxis
     Dosage: UNK
  13. OMEGA-3-ACID ETHYL ESTERS [Concomitant]
     Active Substance: OMEGA-3-ACID ETHYL ESTERS
     Dosage: UNK
  14. MAGNESIUM OXIDE [Concomitant]
     Active Substance: MAGNESIUM OXIDE
     Dosage: UNK
  15. SENNA LEAF [Concomitant]
     Active Substance: SENNA LEAF
     Dosage: UNK
  16. SODIUM PICOSULFATE [Concomitant]
     Active Substance: SODIUM PICOSULFATE
     Dosage: UNK
  17. GLYCOPYRRONIUM\INDACATEROL [Concomitant]
     Active Substance: GLYCOPYRRONIUM\INDACATEROL
     Dosage: UNK
  18. LOXOPROFEN SODIUM [Concomitant]
     Active Substance: LOXOPROFEN SODIUM
     Dosage: UNK

REACTIONS (3)
  - Non-small cell lung cancer [Recovering/Resolving]
  - Metastases to liver [Not Recovered/Not Resolved]
  - Pleural effusion [Not Recovered/Not Resolved]

NARRATIVE: CASE EVENT DATE: 20221101
